FAERS Safety Report 6928393-1 (Version None)
Quarter: 2010Q3

REPORT INFORMATION
  Report Type: 
  Country: None (occurrence: None)
  Receive Date: 20100812
  Receipt Date: 20100804
  Transmission Date: 20110219
  Serious: Yes (Hospitalization, Other)
  Sender: FDA-Public Use
  Company Number: AXC-2010-000205

PATIENT
  Age: 56 Year
  Sex: Male

DRUGS (7)
  1. SUCRALFATE [Suspect]
     Indication: OESOPHAGITIS
     Dosage: 1 G, ORAL
     Route: 048
     Dates: start: 20100616, end: 20100616
  2. PACLITAXEL [Suspect]
     Indication: OESOPHAGEAL CARCINOMA
     Dosage: 6 MG/ML
     Dates: end: 20100101
  3. CARBOPLATIN [Suspect]
     Indication: OESOPHAGEAL CARCINOMA
     Dosage: 10 MG/ML
     Dates: end: 20100101
  4. PRAVASTATIN [Concomitant]
  5. FOLIUMZUUR (FOLIC ACID) [Concomitant]
  6. DEPAKENE [Concomitant]
  7. AMITRIPTYLINE HCL [Concomitant]

REACTIONS (6)
  - ANAPHYLACTIC SHOCK [None]
  - INFECTION [None]
  - NEUTROPENIA [None]
  - RADIATION OESOPHAGITIS [None]
  - RASH [None]
  - SHOCK [None]
